FAERS Safety Report 4820966-5 (Version None)
Quarter: 2005Q4

REPORT INFORMATION
  Report Type: 
  Country: None (occurrence: None)
  Receive Date: 20051104
  Receipt Date: 20050228
  Transmission Date: 20060501
  Serious: Yes (Other)
  Sender: FDA-Public Use
  Company Number: JP-ROCHE-397211

PATIENT
  Age: 53 Year
  Sex: Female

DRUGS (1)
  1. PEGASYS [Suspect]
     Route: 058
     Dates: start: 20041130, end: 20050215

REACTIONS (6)
  - CONDITION AGGRAVATED [None]
  - INFECTION [None]
  - NEPHROLITHIASIS [None]
  - NEUTROPHIL COUNT DECREASED [None]
  - PLATELET COUNT DECREASED [None]
  - PYONEPHROSIS [None]
